FAERS Safety Report 8074395-4 (Version None)
Quarter: 2012Q1

REPORT INFORMATION
  Report Type: 
  Country: None (occurrence: None)
  Receive Date: 20120126
  Receipt Date: 20120125
  Transmission Date: 20120608
  Serious: Yes (Other)
  Sender: FDA-Public Use
  Company Number: US-GLAXOSMITHKLINE-A0963126A

PATIENT
  Age: 72 Year
  Sex: Female

DRUGS (8)
  1. VITAMIN D [Concomitant]
  2. FISH OIL [Concomitant]
  3. CELEBREX [Concomitant]
  4. VALACYCLOVIR [Concomitant]
  5. ACTONEL [Concomitant]
  6. TYLENOL-500 [Concomitant]
  7. LAMICTAL XR [Suspect]
     Indication: EPILEPSY
     Dosage: 125MG PER DAY
     Route: 048
     Dates: start: 20110901
  8. CALCIUM [Concomitant]

REACTIONS (5)
  - FALL [None]
  - INCORRECT STORAGE OF DRUG [None]
  - CONVULSION [None]
  - LOSS OF CONSCIOUSNESS [None]
  - DEJA VU [None]
